FAERS Safety Report 16149621 (Version 2)
Quarter: 2019Q2

REPORT INFORMATION
  Report Type: Spontaneous
  Country: CL (occurrence: CL)
  Receive Date: 20190402
  Receipt Date: 20190517
  Transmission Date: 20190711
  Serious: Yes (Hospitalization, Other)
  Sender: FDA-Public Use
  Company Number: CL-009507513-1903CHL013199

PATIENT
  Age: 31 Year
  Sex: Female

DRUGS (1)
  1. IMPLANON [Suspect]
     Active Substance: ETONOGESTREL
     Dosage: 1 IMPLANT
     Route: 059
     Dates: start: 201503

REACTIONS (9)
  - Coma [Recovered/Resolved]
  - Complication associated with device [Not Recovered/Not Resolved]
  - Incorrect product administration duration [Unknown]
  - Drug abuser [Not Recovered/Not Resolved]
  - Thermal burn [Unknown]
  - Complication of device removal [Not Recovered/Not Resolved]
  - Homeless [Not Recovered/Not Resolved]
  - Pulmonary embolism [Unknown]
  - Accident [Unknown]

NARRATIVE: CASE EVENT DATE: 2018
